FAERS Safety Report 4616164-0 (Version None)
Quarter: 2005Q1

REPORT INFORMATION
  Report Type: 
  Country: None (occurrence: None)
  Receive Date: 20050321
  Receipt Date: 20040202
  Transmission Date: 20050727
  Serious: Yes (Hospitalization)
  Sender: FDA-Public Use
  Company Number: 7464

PATIENT
  Sex: Male

DRUGS (4)
  1. ACYCLOVIR [Suspect]
  2. ABACAVIR [Suspect]
  3. ALLOPURINOL [Suspect]
  4. LAMIVUDINE [Suspect]

REACTIONS (3)
  - ARTHRALGIA [None]
  - BLOOD CREATINE PHOSPHOKINASE INCREASED [None]
  - MYALGIA [None]
